FAERS Safety Report 8184105-8 (Version None)
Quarter: 2012Q1

REPORT INFORMATION
  Report Type: 
  Country: None (occurrence: None)
  Receive Date: 20120305
  Receipt Date: 20120223
  Transmission Date: 20120608
  Serious: Yes (Other)
  Sender: FDA-Public Use
  Company Number: BR-ROCHE-1040256

PATIENT
  Age: 66 Year
  Sex: Female
  Weight: 54 kg

DRUGS (10)
  1. PEGASYS [Suspect]
     Indication: VASCULITIS
     Dates: start: 20100526
  2. DEXTRAN 70 [Suspect]
     Indication: PRODUCT USED FOR UNKNOWN INDICATION
  3. ENALAPRIL MALEATE [Concomitant]
     Indication: BLOOD PRESSURE ABNORMAL
  4. OMEPRAZOLE [Concomitant]
  5. RIBAVIRIN [Suspect]
     Indication: HEPATITIS C
  6. CRANBERRY [Concomitant]
     Indication: URINARY TRACT INFECTION
  7. LEVOTHYROXINE SODIUM [Concomitant]
     Indication: BLOOD THYROID STIMULATING HORMONE ABNORMAL
  8. AMLODIPINE BESYLATE [Concomitant]
     Indication: BLOOD PRESSURE ABNORMAL
  9. PEGASYS [Suspect]
     Indication: HEPATITIS C
     Dates: start: 20000101
  10. RIBAVIRIN [Suspect]
     Indication: VASCULITIS

REACTIONS (12)
  - XEROPHTHALMIA [None]
  - ILL-DEFINED DISORDER [None]
  - DISEASE PROGRESSION [None]
  - DEPRESSION [None]
  - DRUG INEFFECTIVE [None]
  - LEUKOPENIA [None]
  - TUMOUR MARKER INCREASED [None]
  - CRYOGLOBULINS PRESENT [None]
  - VISION BLURRED [None]
  - ANAEMIA [None]
  - VISUAL IMPAIRMENT [None]
  - WOUND [None]
